FAERS Safety Report 20752701 (Version 1)
Quarter: 2022Q2

REPORT INFORMATION
  Report Type: Spontaneous
  Country: US (occurrence: None)
  Receive Date: 20220426
  Receipt Date: 20220426
  Transmission Date: 20220721
  Serious: No
  Sender: FDA-Public Use
  Company Number: US-ROCHE-2890216

PATIENT
  Sex: Male
  Weight: 65.376 kg

DRUGS (4)
  1. ESBRIET [Suspect]
     Active Substance: PIRFENIDONE
     Indication: Idiopathic pulmonary fibrosis
     Dosage: TWO TIMES A MEAL, TWICE A MEAL, SIX TIMES A DAY
     Route: 048
     Dates: start: 20210726
  2. CRESTOR [Concomitant]
     Active Substance: ROSUVASTATIN CALCIUM
     Indication: Colitis
  3. ASPIRIN [Concomitant]
     Active Substance: ASPIRIN
  4. CELEXA [Concomitant]
     Active Substance: CITALOPRAM HYDROBROMIDE
     Indication: Depression

REACTIONS (2)
  - Off label use [Unknown]
  - No adverse event [Unknown]
